FAERS Safety Report 24575813 (Version 1)
Quarter: 2024Q4

REPORT INFORMATION
  Report Type: Spontaneous
  Country: US (occurrence: None)
  Receive Date: 20241101
  Receipt Date: 20241101
  Transmission Date: 20250114
  Serious: Yes (Life-Threatening)
  Sender: Public
  Company Number: None

PATIENT
  Age: 50 Year
  Sex: Female
  Weight: 80.1 kg

DRUGS (1)
  1. MOUNJARO [Suspect]
     Active Substance: TIRZEPATIDE
     Dates: start: 20240928, end: 20241019

REACTIONS (11)
  - Depression [None]
  - Dissociative disorder [None]
  - Bradyphrenia [None]
  - Anxiety [None]
  - Palpitations [None]
  - Feeling abnormal [None]
  - Suicidal ideation [None]
  - Thought blocking [None]
  - Disturbance in attention [None]
  - Bowel movement irregularity [None]
  - Fear [None]

NARRATIVE: CASE EVENT DATE: 20241017
